FAERS Safety Report 24086793 (Version 1)
Quarter: 2024Q3

REPORT INFORMATION
  Report Type: Spontaneous
  Country: FR (occurrence: FR)
  Receive Date: 20240713
  Receipt Date: 20240713
  Transmission Date: 20241016
  Serious: Yes (Hospitalization)
  Sender: TEVA
  Company Number: None

PATIENT
  Age: 65 Year
  Sex: Female

DRUGS (3)
  1. CLARITHROMYCIN [Suspect]
     Active Substance: CLARITHROMYCIN
     Indication: Atypical mycobacterial lower respiratory tract infection
     Dosage: DOSAGE NOT SPECIFIED
     Route: 048
     Dates: start: 202309
  2. RIFABUTIN [Suspect]
     Active Substance: RIFABUTIN
     Indication: Atypical mycobacterial lower respiratory tract infection
     Dosage: DOSAGE NOT SPECIFIED
     Route: 048
     Dates: start: 202309, end: 20240228
  3. ETHAMBUTOL HYDROCHLORIDE [Suspect]
     Active Substance: ETHAMBUTOL HYDROCHLORIDE
     Indication: Atypical mycobacterial lower respiratory tract infection
     Dosage: DOSAGE NOT SPECIFIED
     Route: 048
     Dates: start: 202309

REACTIONS (1)
  - Iridocyclitis [Recovering/Resolving]

NARRATIVE: CASE EVENT DATE: 20231211
